FAERS Safety Report 7009588-8 (Version None)
Quarter: 2010Q3

REPORT INFORMATION
  Report Type: 
  Country: None (occurrence: None)
  Receive Date: 20100923
  Receipt Date: 20100914
  Transmission Date: 20110219
  Serious: Yes (Other)
  Sender: FDA-Public Use
  Company Number: JP-PFIZER INC-2010116243

PATIENT
  Age: 85 Year
  Sex: Female

DRUGS (14)
  1. NORVASC [Suspect]
     Indication: HYPERTENSION
     Dosage: 2.5 MG, 1X/DAY
     Route: 048
     Dates: start: 20080609, end: 20080707
  2. PAXIL [Suspect]
     Indication: INSOMNIA
     Dosage: 10 MG, 1X/DAY
     Route: 048
     Dates: start: 20060330, end: 20071220
  3. PAXIL [Suspect]
     Dosage: 5 MG, 1X/DAY
     Route: 048
     Dates: start: 20071220, end: 20080512
  4. PAXIL [Suspect]
     Dosage: 2.5 MG, 1X/DAY
     Route: 048
     Dates: start: 20080512, end: 20080707
  5. LASIX [Concomitant]
     Indication: CARDIAC FAILURE
     Dosage: 20 MG, 1X/DAY
     Route: 048
     Dates: start: 20051202
  6. MUCOSTA [Concomitant]
     Indication: GASTRITIS PROPHYLAXIS
     Dosage: 100 MG, 3X/DAY
     Route: 048
     Dates: start: 20060330, end: 20080512
  7. ALINAMIN F [Concomitant]
     Indication: MUSCLE FATIGUE
     Dosage: 25 MG, 1X/DAY
     Route: 048
     Dates: start: 20060330, end: 20080512
  8. NELBON [Concomitant]
     Indication: INSOMNIA
     Dosage: 5 MG, 1X/DAY
     Route: 048
     Dates: start: 20060330, end: 20080418
  9. ATARAX [Concomitant]
     Indication: INSOMNIA
     Dosage: 10 MG, 2X/DAY
     Route: 048
     Dates: start: 20070614, end: 20080418
  10. METHYCOBAL [Concomitant]
     Indication: BACK PAIN
     Dosage: 500 UG, 3X/DAY
     Route: 048
     Dates: start: 20060331
  11. ETHYL ICOSAPENTATE [Concomitant]
     Indication: BACK PAIN
     Dosage: 600 MG, 3X/DAY
     Route: 048
     Dates: start: 20060331
  12. OLMETEC [Concomitant]
     Indication: HYPERTENSION
     Dosage: 10 MG, 1X/DAY
     Route: 048
     Dates: start: 20071220, end: 20080512
  13. OLMETEC [Concomitant]
     Dosage: 20 MG, 1X/DAY
     Route: 048
     Dates: start: 20080512
  14. AKINETON [Concomitant]
     Indication: PARKINSON'S DISEASE
     Dosage: 1 MG, 1X/DAY
     Route: 048
     Dates: start: 20071220, end: 20080512

REACTIONS (1)
  - PARKINSONISM [None]
